FAERS Safety Report 7931697-7 (Version None)
Quarter: 2011Q4

REPORT INFORMATION
  Report Type: 
  Country: None (occurrence: None)
  Receive Date: 20111121
  Receipt Date: 20111114
  Transmission Date: 20120403
  Serious: Yes (Other)
  Sender: FDA-Public Use
  Company Number: PHHY2011CH100272

PATIENT
  Age: 51 Year
  Sex: Male

DRUGS (2)
  1. METHADONE HCL [Concomitant]
     Dosage: UNK UKN, UNK
  2. METHYLPHENIDATE [Suspect]
     Dosage: UNK UKN, UNK
     Route: 048

REACTIONS (2)
  - SEDATION [None]
  - TOXICITY TO VARIOUS AGENTS [None]
